FAERS Safety Report 5288272-5 (Version None)
Quarter: 2007Q1

REPORT INFORMATION
  Report Type: 
  Country: None (occurrence: None)
  Receive Date: 20070116
  Receipt Date: 20061024
  Transmission Date: 20070707
  Serious: No
  Sender: FDA-Public Use
  Company Number: FEI2006-1522

PATIENT
  Age: 36 Year
  Sex: Female
  Weight: 48.0813 kg

DRUGS (2)
  1. INTRAUTERINE COPPER CONTRACEPTIVE [Suspect]
     Indication: CONTRACEPTION
     Dosage: INTRA-UTERINE
     Route: 015
     Dates: start: 19961011, end: 20061027
  2. IBUPROFEN [Concomitant]

REACTIONS (3)
  - IUCD COMPLICATION [None]
  - IUD MIGRATION [None]
  - VAGINAL HAEMORRHAGE [None]
